FAERS Safety Report 11643183 (Version 1)
Quarter: 2015Q4

REPORT INFORMATION
  Report Type: Spontaneous
  Country: US (occurrence: US)
  Receive Date: 20151020
  Receipt Date: 20151020
  Transmission Date: 20160304
  Serious: No
  Sender: FDA-Public Use
  Company Number: US-PFIZER INC-2015336637

PATIENT
  Age: 19 Year
  Sex: Male

DRUGS (5)
  1. ZARONTIN [Suspect]
     Active Substance: ETHOSUXIMIDE
     Indication: EPILEPSY
     Dosage: 250 MG, 2X/DAY
     Dates: start: 201506
  2. ACETAZOLAMIDE. [Concomitant]
     Active Substance: ACETAZOLAMIDE
     Indication: SEIZURE
     Dosage: 375 MG (1/2 OF 250 TABLET IN MORNING 125MG; 250MG AT NIGHT), DAILY
  3. ZARONTIN [Suspect]
     Active Substance: ETHOSUXIMIDE
     Dosage: 250MG, BID, 2X/DAY
  4. ZARONTIN [Suspect]
     Active Substance: ETHOSUXIMIDE
     Dosage: 500 MG CAPSULE, 2X/DAY
  5. LAMICTAL [Concomitant]
     Active Substance: LAMOTRIGINE
     Indication: SEIZURE
     Dosage: UNK, 3X/DAY

REACTIONS (1)
  - Hiccups [Recovering/Resolving]

NARRATIVE: CASE EVENT DATE: 201506
